FAERS Safety Report 25475720 (Version 2)
Quarter: 2025Q3

REPORT INFORMATION
  Report Type: Report from Study
  Country: US (occurrence: US)
  Receive Date: 20250624
  Receipt Date: 20250702
  Transmission Date: 20251020
  Serious: Yes (Death)
  Sender: ABBVIE
  Company Number: US-ABBVIE-6341650

PATIENT
  Age: 68 Year
  Sex: Female

DRUGS (1)
  1. HUMIRA [Suspect]
     Active Substance: ADALIMUMAB
     Indication: Psoriasis
     Dosage: CITARE FREE, FROM STRENGTH 40 MILLIGRAM
     Route: 058
     Dates: start: 20190101

REACTIONS (1)
  - Death [Fatal]

NARRATIVE: CASE EVENT DATE: 20201205
